FAERS Safety Report 17213411 (Version 1)
Quarter: 2019Q4

REPORT INFORMATION
  Report Type: Spontaneous
  Country: CA (occurrence: CA)
  Receive Date: 20191230
  Receipt Date: 20191230
  Transmission Date: 20200122
  Serious: Yes (Other)
  Sender: FDA-Public Use
  Company Number: CA-PFIZER INC-2019554509

PATIENT
  Age: 71 Year
  Sex: Female

DRUGS (4)
  1. SULFASALAZINE. [Suspect]
     Active Substance: SULFASALAZINE
     Dosage: 1000 MG, 3X/DAY
     Route: 048
     Dates: start: 20190610
  2. LEFLUNOMIDE. [Suspect]
     Active Substance: LEFLUNOMIDE
     Indication: RHEUMATOID ARTHRITIS
     Dosage: UNK
     Dates: start: 20190311, end: 20191216
  3. SULFASALAZINE. [Suspect]
     Active Substance: SULFASALAZINE
     Indication: RHEUMATOID ARTHRITIS
     Dosage: 1000 MG TWICE A DAY FOR 2 WEEKS (2 TABLETS FOR TWO WEEKS)
     Route: 048
     Dates: start: 20171023
  4. SULFASALAZINE. [Suspect]
     Active Substance: SULFASALAZINE
     Dosage: 1000 MG, 3X/DAY (2 TABLETS THREE TIMES A DAY)
     Route: 048
     Dates: end: 20190311

REACTIONS (1)
  - Bronchiectasis [Unknown]
